FAERS Safety Report 4685253-7 (Version None)
Quarter: 2005Q2

REPORT INFORMATION
  Report Type: 
  Country: None (occurrence: None)
  Receive Date: 20050531
  Receipt Date: 20050407
  Transmission Date: 20051028
  Serious: No
  Sender: FDA-Public Use
  Company Number: WAES 0504USA00897

PATIENT
  Age: 78 Year
  Sex: Male

DRUGS (7)
  1. ZETIA [Suspect]
     Indication: BLOOD CHOLESTEROL INCREASED
     Dosage: 10MG/DAILY/PO
     Route: 048
     Dates: start: 20030101, end: 20050401
  2. ATACAND [Concomitant]
  3. TRICOR [Concomitant]
  4. ASPIRIN [Concomitant]
  5. GLUCOSAMINE [Concomitant]
  6. NITROGLYCERIN [Concomitant]
  7. QUININE [Concomitant]

REACTIONS (1)
  - ARTHRALGIA [None]
